FAERS Safety Report 6346938-X (Version None)
Quarter: 2009Q3

REPORT INFORMATION
  Report Type: 
  Country: None (occurrence: None)
  Receive Date: 20090910
  Receipt Date: 20090807
  Transmission Date: 20100115
  Serious: No
  Sender: FDA-Public Use
  Company Number: US-BAYER-200920638NA

PATIENT
  Sex: Female

DRUGS (3)
  1. REFLUDAN [Suspect]
     Indication: ANTIPHOSPHOLIPID SYNDROME
     Route: 040
     Dates: start: 20090508, end: 20090508
  2. REFLUDAN [Suspect]
     Dosage: 12 MG/HR
     Route: 041
     Dates: start: 20090508, end: 20090510
  3. FONDAPARINUX [Concomitant]
     Route: 058
     Dates: end: 20090507

REACTIONS (1)
  - NO ADVERSE EVENT [None]
